FAERS Safety Report 8417410-8 (Version None)
Quarter: 2012Q2

REPORT INFORMATION
  Report Type: 
  Country: None (occurrence: None)
  Receive Date: 20120606
  Receipt Date: 20120530
  Transmission Date: 20120825
  Serious: Yes (Hospitalization, Other)
  Sender: FDA-Public Use
  Company Number: US-PFIZER INC-2012063582

PATIENT
  Sex: Female
  Weight: 72.562 kg

DRUGS (6)
  1. ACETAMINOPHEN [Suspect]
     Indication: HEADACHE
     Dosage: UNK
     Route: 048
     Dates: end: 20111205
  2. DEPAKOTE [Concomitant]
     Indication: BIPOLAR DISORDER
     Dosage: 500 MG, 2X/DAY
  3. ABILIFY [Concomitant]
     Indication: ANXIETY
     Dosage: 5 MG, 1X/DAY
  4. EFFEXOR XR [Suspect]
     Indication: BIPOLAR DISORDER
  5. EFFEXOR XR [Suspect]
     Indication: ANXIETY
     Dosage: 225 MG, 1X/DAY
     Route: 048
     Dates: start: 19990101
  6. ABILIFY [Concomitant]
     Indication: BIPOLAR DISORDER

REACTIONS (6)
  - PANCREATIC DISORDER [None]
  - RENAL FAILURE ACUTE [None]
  - LIVER DISORDER [None]
  - CEREBROVASCULAR ACCIDENT [None]
  - APHAGIA [None]
  - HYPERTENSION [None]
